FAERS Safety Report 13817976 (Version 1)
Quarter: 2017Q3

REPORT INFORMATION
  Report Type: Spontaneous
  Country: US (occurrence: US)
  Receive Date: 20170731
  Receipt Date: 20170731
  Transmission Date: 20171127
  Serious: No
  Sender: FDA-Public Use
  Company Number: US-ROCHE-735188

PATIENT
  Age: 47 Year
  Sex: Female

DRUGS (1)
  1. BONIVA [Suspect]
     Active Substance: IBANDRONATE SODIUM
     Indication: PRODUCT USED FOR UNKNOWN INDICATION
     Dosage: FREQUENCY: 3 Q
     Route: 065

REACTIONS (2)
  - Blood calcium decreased [Unknown]
  - Bone pain [Unknown]

NARRATIVE: CASE EVENT DATE: 20101004
